FAERS Safety Report 25690183 (Version 1)
Quarter: 2025Q3

REPORT INFORMATION
  Report Type: Other
  Country: US (occurrence: US)
  Receive Date: 20250818
  Receipt Date: 20250818
  Transmission Date: 20251021
  Serious: No
  Sender: APOTEX
  Company Number: US-APOTEX-2025AP011315

PATIENT

DRUGS (1)
  1. LISDEXAMFETAMINE DIMESYLATE [Suspect]
     Active Substance: LISDEXAMFETAMINE DIMESYLATE
     Indication: Product used for unknown indication
     Route: 065

REACTIONS (7)
  - Visual impairment [Unknown]
  - Product substitution issue [Unknown]
  - Fatigue [Unknown]
  - Headache [Unknown]
  - Abdominal discomfort [Unknown]
  - Therapeutic response decreased [Unknown]
  - Therapeutic response changed [Unknown]
